FAERS Safety Report 9461662 (Version 1)
Quarter: 2013Q3

REPORT INFORMATION
  Report Type: Spontaneous
  Country: US (occurrence: US)
  Receive Date: 20130816
  Receipt Date: 20130816
  Transmission Date: 20140515
  Serious: Yes (Other)
  Sender: FDA-Public Use
  Company Number: US-AMGEN-USASP2013056471

PATIENT
  Age: 44 Year
  Sex: Female
  Weight: 102.49 kg

DRUGS (16)
  1. ENBREL [Suspect]
     Indication: PRODUCT USED FOR UNKNOWN INDICATION
     Dosage: 50 MG, QWK
     Route: 058
     Dates: start: 1998
  2. PLAQUENIL                          /00072602/ [Concomitant]
     Dosage: 200 MG, UNK
  3. AMLODIPINE [Concomitant]
     Dosage: 5 MG, UNK
  4. SIMPONI [Concomitant]
     Dosage: 50 MG, UNK
  5. PROTONIX [Concomitant]
     Dosage: 40 MG, UNK
  6. LASIX                              /00032601/ [Concomitant]
     Dosage: 80 MG, UNK
  7. PREDNISONE [Concomitant]
     Dosage: 2.5 MG, UNK
  8. FLEXERIL                           /00821801/ [Concomitant]
     Dosage: 5 MG, UNK
  9. LOPRESSOR [Concomitant]
     Dosage: 50 MG, UNK
  10. METHOTREXATE [Concomitant]
     Dosage: 25 MG/ML, UNK
  11. LORTAB                             /00607101/ [Concomitant]
     Dosage: 5 - 500 MG
  12. TYLENOL WITH CODEIN #3 [Concomitant]
     Dosage: UNK
  13. PRILOSEC                           /00661201/ [Concomitant]
     Dosage: 10 MG, UNK
  14. FOLIC ACID [Concomitant]
     Dosage: UNK
  15. NEURONTIN [Concomitant]
     Dosage: 100 MG, UNK
  16. POTASSIUM CHLORIDE [Concomitant]
     Dosage: 10 MEQ, UNK

REACTIONS (7)
  - Pneumonia [Unknown]
  - Feeling abnormal [Unknown]
  - Malaise [Unknown]
  - Presyncope [Unknown]
  - Dizziness [Unknown]
  - Sinusitis [Unknown]
  - Bronchitis [Unknown]
